FAERS Safety Report 9716793 (Version 2)
Quarter: 2013Q4

REPORT INFORMATION
  Report Type: Spontaneous
  Country: FR (occurrence: FR)
  Receive Date: 20131127
  Receipt Date: 20131205
  Transmission Date: 20140711
  Serious: Yes (Hospitalization)
  Sender: FDA-Public Use
  Company Number: FR-PFIZER INC-2013332239

PATIENT
  Age: 68 Year
  Sex: Male

DRUGS (15)
  1. DALACINE [Suspect]
     Dosage: UNK
     Route: 042
     Dates: start: 20130722, end: 20130725
  2. METRONIDAZOLE [Suspect]
     Dosage: UNK
     Route: 042
     Dates: start: 20130704, end: 20130729
  3. VANCOMYCINE [Suspect]
     Dosage: UNK
     Dates: start: 20130710, end: 20130718
  4. PERFALGAN [Suspect]
     Dosage: UNK
     Route: 042
     Dates: start: 20130706, end: 20130726
  5. LOPERAMIDE HYDROCHLORIDE [Suspect]
     Dosage: UNK
     Dates: start: 20130710, end: 20130718
  6. LASILIX [Concomitant]
     Dosage: UNK
     Route: 042
     Dates: start: 20130724
  7. KARDEGIC [Concomitant]
     Route: 048
  8. INEXIUM /01479302/ [Concomitant]
     Route: 048
  9. LEXOMIL [Concomitant]
     Dosage: UNK
     Route: 048
     Dates: start: 20130718
  10. SPECIAFOLDINE [Concomitant]
     Dosage: UNK
     Route: 048
     Dates: start: 20130704
  11. TAHOR [Concomitant]
     Route: 048
  12. PLAVIX [Concomitant]
     Dosage: UNK
  13. CARDENSIEL [Concomitant]
     Dosage: UNK
  14. OMEPRAZOLE ACTAVIS [Concomitant]
     Dosage: UNK
  15. SYMBICORT TURBOHALER [Concomitant]
     Dosage: UNK

REACTIONS (3)
  - Thrombocytopenia [Recovered/Resolved]
  - Erythema [Recovered/Resolved]
  - Purpura [Recovered/Resolved]
